FAERS Safety Report 23841779 (Version 1)
Quarter: 2024Q2

REPORT INFORMATION
  Report Type: Spontaneous
  Country: US (occurrence: US)
  Receive Date: 20240510
  Receipt Date: 20240510
  Transmission Date: 20240716
  Serious: No
  Sender: FDA-Public Use
  Company Number: US-COLLEGIUM PHARMACEUTICAL, INC.-20240300239

PATIENT

DRUGS (2)
  1. XTAMPZA ER [Suspect]
     Active Substance: OXYCODONE
     Indication: Product used for unknown indication
     Dosage: 13.5 MILLIGRAM, EVERY 12 HOURS
     Route: 065
     Dates: start: 202310
  2. XTAMPZA ER [Suspect]
     Active Substance: OXYCODONE
     Dosage: 18 MILLIGRAM, EVERY 12 HOURS
     Route: 065
     Dates: end: 202401

REACTIONS (6)
  - Palpitations [Recovered/Resolved]
  - Asthenia [Recovered/Resolved]
  - Feeling abnormal [Recovered/Resolved]
  - Tremor [Recovered/Resolved]
  - Somnolence [Recovered/Resolved]
  - Nausea [Recovered/Resolved]

NARRATIVE: CASE EVENT DATE: 20230101
